FAERS Safety Report 9580895 (Version 1)
Quarter: 2013Q4

REPORT INFORMATION
  Report Type: Spontaneous
  Country: US (occurrence: US)
  Receive Date: 20131002
  Receipt Date: 20131002
  Transmission Date: 20140711
  Serious: Yes (Hospitalization)
  Sender: FDA-Public Use
  Company Number: US-PFIZER INC-2013280958

PATIENT
  Age: 78 Year
  Sex: Female
  Weight: 58.5 kg

DRUGS (1)
  1. LYRICA [Suspect]
     Indication: PAIN IN EXTREMITY
     Dosage: 50 MG, 3X/DAY

REACTIONS (2)
  - Urinary tract infection [Recovered/Resolved]
  - Dehydration [Recovered/Resolved]
